FAERS Safety Report 4970892-6 (Version None)
Quarter: 2006Q2

REPORT INFORMATION
  Report Type: 
  Country: None (occurrence: None)
  Receive Date: 20060411
  Receipt Date: 20060411
  Transmission Date: 20061013
  Serious: Yes (Hospitalization)
  Sender: FDA-Public Use
  Company Number: None

PATIENT
  Age: 75 Year
  Sex: Male
  Weight: 88.4 kg

DRUGS (2)
  1. LOSARTAN POTASSIUM [Suspect]
     Indication: HYPERTENSION
     Dosage: 100MG,  100MG QD, ORAL
     Route: 048
     Dates: start: 20051214, end: 20060330
  2. IBUPROFEN [Concomitant]

REACTIONS (1)
  - RENAL IMPAIRMENT [None]
